FAERS Safety Report 4518059-X (Version None)
Quarter: 2004Q4

REPORT INFORMATION
  Report Type: 
  Country: None (occurrence: None)
  Receive Date: 20041203
  Receipt Date: 20041201
  Transmission Date: 20050328
  Serious: Yes (Other)
  Sender: FDA-Public Use
  Company Number: US-GLAXOSMITHKLINE-A0535747A

PATIENT
  Age: 26 Year
  Sex: Female

DRUGS (2)
  1. ADVAIR DISKUS 100/50 [Suspect]
     Indication: ASTHMA
     Route: 055
  2. FLONASE [Concomitant]

REACTIONS (3)
  - DIZZINESS [None]
  - ELECTROCARDIOGRAM QT PROLONGED [None]
  - ELECTROLYTE IMBALANCE [None]
